FAERS Safety Report 8758685 (Version 1)
Quarter: 2012Q4

REPORT INFORMATION
  Report Type: 
  Country: DO (occurrence: DO)
  Receive Date: 20120829
  Receipt Date: 20120829
  Transmission Date: 20130627
  Serious: Yes (Other)
  Sender: FDA-Public Use
  Company Number: PHHY2012DO074298

PATIENT
  Age: 65 Year
  Sex: Male

DRUGS (2)
  1. EXELON PATCH [Suspect]
     Indication: DEMENTIA ALZHEIMER^S TYPE
     Dosage: 9.5 mg/ 24 hours
     Route: 062
  2. EXELON PATCH [Suspect]
     Dosage: 2 DF, ONCE/SINGLE
     Route: 062

REACTIONS (5)
  - Blood glucose increased [Unknown]
  - Syncope [Recovered/Resolved]
  - Disorientation [Unknown]
  - Incorrect dose administered [Unknown]
  - Inappropriate schedule of drug administration [Unknown]
